FAERS Safety Report 5001128-8 (Version None)
Quarter: 2006Q2

REPORT INFORMATION
  Report Type: 
  Country: None (occurrence: None)
  Receive Date: 20060512
  Receipt Date: 20060504
  Transmission Date: 20061013
  Serious: Yes (Hospitalization, Other)
  Sender: FDA-Public Use
  Company Number: 2006PK00979

PATIENT
  Age: 78 Year
  Sex: Male

DRUGS (7)
  1. SEROQUEL [Suspect]
     Indication: RESTLESSNESS
     Route: 048
     Dates: start: 20051220
  2. SEROQUEL [Suspect]
     Indication: AGITATION
     Route: 048
     Dates: start: 20051220
  3. SEROQUEL [Suspect]
     Route: 048
     Dates: start: 20060117
  4. SEROQUEL [Suspect]
     Route: 048
     Dates: start: 20060117
  5. DISTRANEURIN [Suspect]
     Indication: RESTLESSNESS
     Route: 048
     Dates: start: 20051120, end: 20060127
  6. DISTRANEURIN [Suspect]
     Indication: AGITATION
     Route: 048
     Dates: start: 20051120, end: 20060127
  7. LORAZEPAM [Concomitant]
     Route: 048

REACTIONS (2)
  - HEPATOCELLULAR DAMAGE [None]
  - JAUNDICE [None]
